FAERS Safety Report 23024383 (Version 1)
Quarter: 2023Q4

REPORT INFORMATION
  Report Type: Spontaneous
  Country: FR (occurrence: FR)
  Receive Date: 20231004
  Receipt Date: 20231004
  Transmission Date: 20240110
  Serious: Yes (Death, Other)
  Sender: FDA-Public Use
  Company Number: FR-AFSSAPS-AVCN2023000501

PATIENT
  Age: 43 Year
  Sex: Female

DRUGS (1)
  1. OXYCODONE [Suspect]
     Active Substance: OXYCODONE
     Indication: Product used for unknown indication
     Dosage: UNK
     Route: 065
     Dates: end: 20220723

REACTIONS (4)
  - Poisoning [Fatal]
  - Aspiration [Fatal]
  - Asphyxia [Fatal]
  - Cardio-respiratory arrest [Fatal]
